FAERS Safety Report 13111283 (Version 6)
Quarter: 2018Q4

REPORT INFORMATION
  Report Type: Spontaneous
  Country: FR (occurrence: FR)
  Receive Date: 20170112
  Receipt Date: 20181205
  Transmission Date: 20190204
  Serious: Yes (Congenital Anomaly, Other)
  Sender: FDA-Public Use
  Company Number: FR-ABBVIE-17P-056-1837340-00

PATIENT
  Sex: Male

DRUGS (3)
  1. DEPAKINE [Suspect]
     Active Substance: VALPROATE SODIUM
     Indication: MATERNAL EXPOSURE TIMING UNSPECIFIED
     Route: 064
  2. DOLIPRANE [Suspect]
     Active Substance: ACETAMINOPHEN
     Indication: MATERNAL EXPOSURE TIMING UNSPECIFIED
     Route: 064
  3. DEPAKINE CHRONO [Suspect]
     Active Substance: VALPROATE SODIUM
     Indication: MATERNAL EXPOSURE TIMING UNSPECIFIED
     Route: 064

REACTIONS (18)
  - Speech disorder [Unknown]
  - Disturbance in attention [Unknown]
  - Dysmorphism [Not Recovered/Not Resolved]
  - Foot deformity [Unknown]
  - Arachnodactyly [Unknown]
  - Inguinal hernia [Unknown]
  - Cryptorchism [Unknown]
  - Hypermobility syndrome [Unknown]
  - Psychomotor retardation [Unknown]
  - Strabismus [Unknown]
  - Attention deficit/hyperactivity disorder [Unknown]
  - Developmental delay [Not Recovered/Not Resolved]
  - Learning disorder [Unknown]
  - Finger deformity [Unknown]
  - Foetal exposure during pregnancy [Unknown]
  - Enuresis [Recovered/Resolved]
  - Scoliosis [Unknown]
  - Myoclonus [Unknown]
